FAERS Safety Report 25288067 (Version 1)
Quarter: 2025Q2

REPORT INFORMATION
  Report Type: Spontaneous
  Country: SE (occurrence: SE)
  Receive Date: 20250509
  Receipt Date: 20250509
  Transmission Date: 20250716
  Serious: Yes (Other)
  Sender: AZURITY PHARMACEUTICALS
  Company Number: SE-AZURITY PHARMACEUTICALS, INC.-AZR202504-001251

PATIENT
  Age: 14 Year
  Sex: Male

DRUGS (2)
  1. IVERMECTIN [Suspect]
     Active Substance: IVERMECTIN
     Indication: Acarodermatitis
     Route: 065
  2. PIPERONYL BUTOXIDE\S-BIOALLETHRIN [Suspect]
     Active Substance: PIPERONYL BUTOXIDE\S-BIOALLETHRIN
     Indication: Product used for unknown indication
     Route: 061

REACTIONS (5)
  - Monoparesis [Recovered/Resolved]
  - Crying [Recovered/Resolved]
  - Dizziness [Recovered/Resolved]
  - Tremor [Recovered/Resolved]
  - Chills [Recovered/Resolved]
